FAERS Safety Report 21258286 (Version 1)
Quarter: 2022Q3

REPORT INFORMATION
  Report Type: Spontaneous
  Country: FR (occurrence: FR)
  Receive Date: 20220826
  Receipt Date: 20220826
  Transmission Date: 20221026
  Serious: Yes (Hospitalization, Other)
  Sender: FDA-Public Use
  Company Number: None

PATIENT
  Age: 77 Year
  Sex: Female
  Weight: 117 kg

DRUGS (4)
  1. PREGABALIN [Suspect]
     Active Substance: PREGABALIN
     Dosage: 100 MG, SINGLE
     Route: 048
     Dates: start: 20220802, end: 20220802
  2. METHYLPREDNISOLONE [Concomitant]
     Active Substance: METHYLPREDNISOLONE
     Indication: Wrong patient
     Dosage: 8 MG, SINGLE
     Route: 048
     Dates: start: 20220802, end: 20220802
  3. EUTHYROX [Concomitant]
     Active Substance: LEVOTHYROXINE SODIUM
     Indication: Wrong patient
     Dosage: 125 UG, SINGLE
     Route: 048
     Dates: start: 20220802, end: 20220802
  4. ELIQUIS [Concomitant]
     Active Substance: APIXABAN
     Indication: Wrong patient
     Dosage: 2.5 MG, SINGLE
     Route: 048
     Dates: start: 20220802, end: 20220802

REACTIONS (6)
  - Wrong patient received product [Recovered/Resolved]
  - Hypercapnia [Recovered/Resolved]
  - Altered state of consciousness [Recovered/Resolved]
  - Mydriasis [Recovered/Resolved]
  - Hypotonia [Recovered/Resolved]
  - Hypoxia [Recovered/Resolved]

NARRATIVE: CASE EVENT DATE: 20220802
